FAERS Safety Report 11588679 (Version 1)
Quarter: 2015Q4

REPORT INFORMATION
  Report Type: Spontaneous
  Country: US (occurrence: US)
  Receive Date: 20151002
  Receipt Date: 20151002
  Transmission Date: 20160304
  Serious: Yes (Life-Threatening, Hospitalization)
  Sender: FDA-Public Use
  Company Number: US-ACTAVIS-2015-20956

PATIENT
  Age: 46 Year
  Sex: Female

DRUGS (2)
  1. LEVOTHYROXINE. [Concomitant]
     Active Substance: LEVOTHYROXINE
     Indication: PRODUCT USED FOR UNKNOWN INDICATION
     Dosage: UNK
     Route: 065
  2. TAMOXIFEN CITRATE (ACTAVIS LABORATORIES FL) [Suspect]
     Active Substance: TAMOXIFEN CITRATE
     Indication: INVASIVE DUCTAL BREAST CARCINOMA
     Dosage: 20 MG, DAILY
     Route: 065

REACTIONS (3)
  - Portal vein thrombosis [Not Recovered/Not Resolved]
  - Haematemesis [Recovered/Resolved]
  - Varices oesophageal [Recovering/Resolving]
